FAERS Safety Report 10434268 (Version 3)
Quarter: 2014Q4

REPORT INFORMATION
  Report Type: Report from Study
  Country: GB (occurrence: GB)
  Receive Date: 20140905
  Receipt Date: 20141003
  Transmission Date: 20150528
  Serious: Yes (Hospitalization)
  Sender: FDA-Public Use
  Company Number: GB-ALLERGAN-1418928US

PATIENT
  Age: 48 Year
  Sex: Male

DRUGS (21)
  1. BETNOVAT-C [Concomitant]
     Dosage: 100 MG, QD
     Dates: start: 20130913
  2. FUROSEMIDE. [Concomitant]
     Active Substance: FUROSEMIDE
     Dosage: 20 MG, QD
     Dates: start: 2011
  3. DEXTROSE GEL [Concomitant]
     Dosage: 1 APPLICATION, PRN
     Dates: start: 1977
  4. HYLO TEAR [Concomitant]
     Dosage: 1 GTT, PRN
     Route: 047
     Dates: start: 20131016
  5. VISCOTEARS [Concomitant]
     Active Substance: CARBOMER
     Dosage: UNK
     Dates: start: 20131016
  6. LACRILUBE [Concomitant]
     Dosage: 1 APPLICATION, QD
     Dates: start: 20140306
  7. AMLODIPINE [Concomitant]
     Active Substance: AMLODIPINE BESYLATE
     Dosage: 10 MG, UNK
     Dates: start: 2011
  8. GLUCAGON. [Concomitant]
     Active Substance: GLUCAGON
     Dosage: 1 IU, PRN
     Dates: start: 1977
  9. CO-AMOXICLAV [Concomitant]
     Active Substance: AMOXICILLIN\CLAVULANIC ACID
     Dosage: 500/125, TID
     Dates: start: 20140822, end: 20140904
  10. SCALP APPLICATION [Concomitant]
     Dosage: 1 APLICATION QD
     Dates: start: 20130917
  11. OMEPRAZOLE. [Concomitant]
     Active Substance: OMEPRAZOLE
     Dosage: 20 MG, QD
     Dates: start: 2006
  12. SODIUM BICARBONATE. [Concomitant]
     Active Substance: SODIUM BICARBONATE
     Dosage: 1000 MG, UNK
     Dates: start: 2006
  13. NOVORAPID [Concomitant]
     Active Substance: INSULIN ASPART
     Dosage: 10-12 IU TID, (PRN)
     Dates: start: 1977
  14. BETAMETHASONE VALERATE. [Concomitant]
     Active Substance: BETAMETHASONE VALERATE
     Dosage: 1 APPLICATION, QD
     Dates: start: 20130917
  15. DULOXETINE [Concomitant]
     Active Substance: DULOXETINE
     Dosage: 120 MG, QD
     Dates: start: 1995
  16. TARGINACT [Concomitant]
     Active Substance: NALOXONE HYDROCHLORIDE\OXYCODONE HYDROCHLORIDE
     Dosage: 15 MG, BID
     Dates: start: 2010
  17. CAPASAL [Concomitant]
     Dosage: 1 APPLICATION, QD
     Dates: start: 20130917
  18. VISCOTEARS [Concomitant]
     Active Substance: CARBOMER
     Dosage: 1 GTT, PRN, QID
     Route: 047
     Dates: start: 20140306
  19. DEX 0.7MG INS (9632X) [Suspect]
     Active Substance: DEXAMETHASONE
     Indication: DIABETIC RETINAL OEDEMA
     Dosage: 0.7 MG, SINGLE
     Route: 031
     Dates: start: 20140624, end: 20140624
  20. LEVEMIR [Concomitant]
     Active Substance: INSULIN DETEMIR
     Dosage: 30 IU, QPM (PRN)
     Dates: start: 1977
  21. DEX 0.7MG INS (9632X) [Suspect]
     Active Substance: DEXAMETHASONE
     Dosage: 0.7 MG, SINGLE
     Route: 031
     Dates: start: 20130815, end: 20130815

REACTIONS (1)
  - Sepsis [Recovered/Resolved with Sequelae]

NARRATIVE: CASE EVENT DATE: 20140806
